FAERS Safety Report 16747188 (Version 1)
Quarter: 2019Q3

REPORT INFORMATION
  Report Type: Spontaneous
  Country: CA (occurrence: CA)
  Receive Date: 20190827
  Receipt Date: 20190827
  Transmission Date: 20191005
  Serious: Yes (Hospitalization, Other)
  Sender: FDA-Public Use
  Company Number: PHHY2019CA198939

PATIENT
  Age: 6 Year
  Sex: Male
  Weight: 7 kg

DRUGS (1)
  1. IOPIDINE [Suspect]
     Active Substance: APRACLONIDINE HYDROCHLORIDE
     Indication: PUPIL DILATION PROCEDURE
     Dosage: 6 GTT, QD
     Route: 047

REACTIONS (4)
  - Depressed level of consciousness [Recovering/Resolving]
  - Areflexia [Recovering/Resolving]
  - Hypotonia [Recovering/Resolving]
  - Hypokinesia [Recovering/Resolving]
